FAERS Safety Report 17406172 (Version 4)
Quarter: 2020Q1

REPORT INFORMATION
  Report Type: Spontaneous
  Country: IL (occurrence: IL)
  Receive Date: 20200212
  Receipt Date: 20200227
  Transmission Date: 20200409
  Serious: Yes (Hospitalization, Other)
  Sender: FDA-Public Use
  Company Number: IL-GLAXOSMITHKLINE-IL2020EME021262

PATIENT
  Age: 59 Year
  Sex: Male

DRUGS (3)
  1. LYRICA [Suspect]
     Active Substance: PREGABALIN
     Indication: PRODUCT USED FOR UNKNOWN INDICATION
     Dosage: UNK
     Route: 042
  2. NUCALA [Suspect]
     Active Substance: MEPOLIZUMAB
     Indication: ASTHMA
  3. NUCALA [Suspect]
     Active Substance: MEPOLIZUMAB
     Indication: GRANULOMATOSIS WITH POLYANGIITIS
     Dosage: 100 MG
     Route: 042

REACTIONS (3)
  - Thrombocytopenia [Not Recovered/Not Resolved]
  - Asthma [Unknown]
  - Eosinophilic granulomatosis with polyangiitis [Unknown]
